FAERS Safety Report 10203312 (Version 1)
Quarter: 2014Q2

REPORT INFORMATION
  Report Type: Spontaneous
  Country: US (occurrence: US)
  Receive Date: 20140529
  Receipt Date: 20140529
  Transmission Date: 20141212
  Serious: Yes (Other)
  Sender: FDA-Public Use
  Company Number: US-JNJCP-30000220453

PATIENT
  Sex: Female
  Weight: 50 kg

DRUGS (13)
  1. AVEENO POSITIVELY RADIANT DAILY MOISTURIZER W/SPF 15 [Suspect]
     Indication: DRY SKIN PROPHYLAXIS
     Dosage: DIME SIZED AMOUNT AFTER THE SHOWER, USUALLY DAILY
     Route: 061
     Dates: start: 20140512
  2. ESTRACE CREAM [Concomitant]
     Indication: VULVOVAGINAL DRYNESS
     Dosage: EVERY OTHER DAY SINCE MORE THAN ONE YEAR
  3. INDAPAMIDE [Concomitant]
     Indication: HYPERTENSION
     Dosage: TWICE A WEEK SINCE MORE THAN ONE YEAR
  4. MAG-64 [Concomitant]
     Indication: ROUTINE HEALTH MAINTENANCE
     Dosage: TWICE A DAY SINCE MORE THAN ONE YEAR
  5. POTASSIUM (TAKES 2 ON THE DAYS SHE TA KES INDAPRAMIDE) [Concomitant]
     Indication: HYPERTENSION
     Dosage: ONE OR TWO A DAY SINCE MORE THAN ONE YEAR
  6. TOPROL [Concomitant]
     Indication: HEART RATE INCREASED
     Dosage: ONE A DAY SINCE MORE THAN ONE YEAR
  7. XARELTO [Concomitant]
     Indication: ATRIAL FIBRILLATION
     Dosage: ONE A DAY SINCE ONE YEAR
  8. COZAAR [Concomitant]
     Indication: HYPERTENSION
     Dosage: ONE A DAY SINCE MORE THAN ONE YEAR
  9. AVEENO DAILY MOISTURIZING LOTION [Suspect]
     Indication: DRY SKIN PROPHYLAXIS
     Dosage: JUST ENOUGH TO COVER MY HANDS AS NEEDED FOR DRYNESS
     Route: 061
  10. AVEENO DAILY MOISTURIZING LOTION [Suspect]
     Indication: DRY SKIN PROPHYLAXIS
     Dosage: JUST ENOUGH TO COVER MY HANDS AS NEEDED FOR DRYNESS
     Route: 061
  11. AVEENO POSITIVELY RADIANT DAILY MOISTURIZER W/SPF 15 [Suspect]
     Indication: DRY SKIN PROPHYLAXIS
     Dosage: DIME SIZED AMOUNT AFTER MY SHOWER, USUALLY DAILY
     Route: 061
  12. AVEENO PRODUCTS [Suspect]
     Indication: DRY SKIN PROPHYLAXIS
     Route: 061
  13. AVEENO PRODUCTS [Suspect]
     Indication: DRY SKIN PROPHYLAXIS
     Route: 061

REACTIONS (8)
  - Pancreatic cyst [Recovered/Resolved]
  - Breast mass [Recovered/Resolved]
  - Salivary gland operation [Unknown]
  - Drug administered at inappropriate site [Unknown]
  - Application site pain [Recovered/Resolved]
  - Application site dryness [Recovered/Resolved]
  - Application site reaction [Recovered/Resolved]
  - Expired product administered [Unknown]
